FAERS Safety Report 24441942 (Version 2)
Quarter: 2024Q4

REPORT INFORMATION
  Report Type: Report from Study
  Country: PK (occurrence: PK)
  Receive Date: 20241016
  Receipt Date: 20241017
  Transmission Date: 20250114
  Serious: No
  Sender: ROCHE
  Company Number: PK-ROCHE-3521656

PATIENT

DRUGS (2)
  1. EMICIZUMAB [Suspect]
     Active Substance: EMICIZUMAB
     Indication: Factor VIII deficiency
     Dosage: LOADING DOSE IN THE FIRST 4 WEEKS
     Route: 065
  2. EMICIZUMAB [Suspect]
     Active Substance: EMICIZUMAB
     Dosage: THE MAINTENANCE DOSE WAS STARTED AT WEEK 5 AT 6 MG/KG/MONTH
     Route: 065

REACTIONS (4)
  - Erythema [Unknown]
  - Pain [Unknown]
  - Headache [Unknown]
  - Rash [Unknown]
